FAERS Safety Report 22958895 (Version 2)
Quarter: 2024Q3

REPORT INFORMATION
  Report Type: Report from Study
  Country: US (occurrence: US)
  Receive Date: 20230919
  Receipt Date: 20240710
  Transmission Date: 20241016
  Serious: No
  Sender: ROCHE
  Company Number: US-ROCHE-3418028

PATIENT
  Age: 31 Year
  Sex: Male

DRUGS (1)
  1. ALECENSA [Suspect]
     Active Substance: ALECTINIB HYDROCHLORIDE
     Indication: Histiocytosis
     Route: 065

REACTIONS (2)
  - Blood bilirubin increased [Unknown]
  - Blood sodium increased [Unknown]
